FAERS Safety Report 5342131-8 (Version None)
Quarter: 2007Q2

REPORT INFORMATION
  Report Type: 
  Country: None (occurrence: None)
  Receive Date: 20070413
  Receipt Date: 20060317
  Transmission Date: 20071010
  Serious: Yes (Other)
  Sender: FDA-Public Use
  Company Number: US-JNJFOC-20060304768

PATIENT
  Age: 81 Year
  Sex: Male

DRUGS (6)
  1. VIADUR [Suspect]
     Indication: PROSTATE CANCER
     Dosage: 120 UG, 1 IN 1 DAY, SUBCUTANEOUS
     Route: 058
     Dates: start: 20050708
  2. CARBAMAZEPINE [Concomitant]
  3. ATENOLOL [Concomitant]
  4. LISINOPRIL [Concomitant]
  5. HYTRIN [Concomitant]
  6. GUANFACINE (GUANFACINE) [Concomitant]

REACTIONS (2)
  - ANXIETY [None]
  - HYPERTENSION [None]
